FAERS Safety Report 23744640 (Version 3)
Quarter: 2025Q4

REPORT INFORMATION
  Report Type: Spontaneous
  Country: EU (occurrence: EU)
  Receive Date: 20240415
  Receipt Date: 20251208
  Transmission Date: 20260117
  Serious: Yes (Other)
  Sender: INCYTE
  Company Number: EU-002147023-NVSC2024PL073938

PATIENT
  Age: 14 Year

DRUGS (1)
  1. RUXOLITINIB [Suspect]
     Active Substance: RUXOLITINIB
     Indication: Acute lymphocytic leukaemia
     Dosage: UNK
     Route: 065

REACTIONS (5)
  - Hypothyroidism [Unknown]
  - Diabetes mellitus [Unknown]
  - Polyneuropathy [Unknown]
  - Bone marrow failure [Unknown]
  - Product use in unapproved indication [Unknown]
